FAERS Safety Report 5510268-6 (Version None)
Quarter: 2007Q4

REPORT INFORMATION
  Report Type: 
  Country: None (occurrence: None)
  Receive Date: 20071108
  Receipt Date: 20071003
  Transmission Date: 20080405
  Serious: Yes (Disabling)
  Sender: FDA-Public Use
  Company Number: US-MERCK-0711USA00325

PATIENT
  Age: 40 Year
  Sex: Male

DRUGS (9)
  1. SUSTIVA [Suspect]
     Indication: HIV INFECTION
     Route: 065
     Dates: start: 19990101
  2. SAQUINAVIR [Concomitant]
     Route: 065
     Dates: start: 19990101
  3. CRIXIVAN [Suspect]
     Route: 065
     Dates: start: 19990101, end: 19990101
  4. DIDANOSINE [Concomitant]
     Route: 065
     Dates: start: 19990101
  5. STAVUDINE [Suspect]
     Route: 065
     Dates: start: 19990101
  6. INSULIN HUMAN [Concomitant]
     Route: 065
     Dates: start: 19990101
  7. INSULIN [Concomitant]
     Route: 065
     Dates: start: 19990101
  8. INSULIN [Concomitant]
     Route: 065
     Dates: start: 19990101
  9. ABACAVIR SULFATE [Concomitant]
     Route: 065
     Dates: start: 20020101

REACTIONS (3)
  - INSULIN RESISTANCE [None]
  - LIPODYSTROPHY ACQUIRED [None]
  - METABOLIC SYNDROME [None]
